FAERS Safety Report 5820293-3 (Version None)
Quarter: 2008Q3

REPORT INFORMATION
  Report Type: 
  Country: None (occurrence: None)
  Receive Date: 20080724
  Receipt Date: 20070601
  Transmission Date: 20090109
  Serious: No
  Sender: FDA-Public Use
  Company Number: A0653825A

PATIENT
  Sex: Female

DRUGS (8)
  1. AVANDIA [Suspect]
     Dosage: 4MG PER DAY
     Route: 048
     Dates: start: 20030101, end: 20070501
  2. PROPRANOLOL [Concomitant]
  3. SYNTHROID [Concomitant]
  4. DIOVAN [Concomitant]
  5. PRAVACHOL [Concomitant]
  6. HYDROCHLOROTHIAZIDE [Concomitant]
  7. GLUCOPHAGE [Concomitant]
  8. XANAX [Concomitant]

REACTIONS (1)
  - WEIGHT INCREASED [None]
